FAERS Safety Report 5332234-6 (Version None)
Quarter: 2007Q1

REPORT INFORMATION
  Report Type: 
  Country: None (occurrence: None)
  Receive Date: 20070306
  Receipt Date: 20060502
  Transmission Date: 20070707
  Serious: Yes (Hospitalization)
  Sender: FDA-Public Use
  Company Number: A03200602828

PATIENT
  Age: 68 Year
  Sex: Female
  Weight: 67.12 kg

DRUGS (9)
  1. PLAVIX [Suspect]
     Indication: CAROTID ARTERY OCCLUSION
     Dosage: 75 MG QD - ORAL
     Route: 048
     Dates: start: 20040901, end: 20040101
  2. PANTOPRAZOLE SODIUM [Concomitant]
  3. LEVOTHYROXINE SODIUM [Concomitant]
  4. PRIMIDONE [Concomitant]
  5. PROPRANOLOL HYDROCHLORIDE [Concomitant]
  6. CALCITONIN-SALMON [Concomitant]
  7. BUDESONIDE [Concomitant]
  8. ZELNIG [Concomitant]
  9. MEDROXYPROGESTERONE ACETATE [Concomitant]

REACTIONS (4)
  - ANAEMIA [None]
  - HAEMORRHAGIC DIATHESIS [None]
  - LOSS OF CONSCIOUSNESS [None]
  - RECTAL HAEMORRHAGE [None]
